FAERS Safety Report 4657843-9 (Version None)
Quarter: 2005Q2

REPORT INFORMATION
  Report Type: 
  Country: None (occurrence: None)
  Receive Date: 20050510
  Receipt Date: 20050425
  Transmission Date: 20051028
  Serious: Yes (Hospitalization, Other)
  Sender: FDA-Public Use
  Company Number: US-MERCK-0504USA04390

PATIENT
  Age: 50 Year
  Sex: Male

DRUGS (8)
  1. VYTORIN [Suspect]
     Indication: BLOOD CHOLESTEROL INCREASED
     Route: 048
     Dates: start: 20050401
  2. ALCOHOL [Suspect]
     Route: 065
  3. IMDUR [Concomitant]
     Route: 065
  4. ASPIRIN [Concomitant]
     Route: 065
  5. VITAMINS (UNSPECIFIED) [Concomitant]
     Route: 065
  6. PLAVIX [Concomitant]
     Route: 065
  7. VASOTEC [Concomitant]
     Route: 065
  8. LABETALOL HYDROCHLORIDE [Concomitant]
     Route: 065

REACTIONS (2)
  - DRUG INTERACTION [None]
  - HEPATIC FAILURE [None]
